FAERS Safety Report 23657605 (Version 1)
Quarter: 2024Q1

REPORT INFORMATION
  Report Type: Spontaneous
  Country: US (occurrence: None)
  Receive Date: 20240320
  Receipt Date: 20240320
  Transmission Date: 20240410
  Serious: Yes (Disabling)
  Sender: FDA-Public Use
  Company Number: None

PATIENT
  Age: 58 Year
  Sex: Female
  Weight: 58.5 kg

DRUGS (2)
  1. INDOCYANINE GREEN [Suspect]
     Active Substance: INDOCYANINE GREEN
     Indication: Vitrectomy
     Dosage: OTHER QUANTITY : 1 1;?
     Dates: start: 20240125, end: 20240125
  2. ADVIL [Concomitant]
     Active Substance: IBUPROFEN

REACTIONS (1)
  - Visual field defect [None]

NARRATIVE: CASE EVENT DATE: 20240125
